FAERS Safety Report 20446737 (Version 4)
Quarter: 2024Q4

REPORT INFORMATION
  Report Type: Report from Study
  Country: JP (occurrence: JP)
  Receive Date: 20220208
  Receipt Date: 20241017
  Transmission Date: 20250115
  Serious: Yes (Other)
  Sender: JOHNSON AND JOHNSON
  Company Number: JP-JNJFOC-20211046378

PATIENT

DRUGS (3)
  1. INVEGA [Suspect]
     Active Substance: PALIPERIDONE
     Indication: Schizophrenia
     Dosage: LESS THAN OR EQUAL TO 6 MG/DAY AND 12 MG/DAY ONCE DAILY
     Route: 048
  2. ARIPIPRAZOLE [Suspect]
     Active Substance: ARIPIPRAZOLE
     Indication: Schizophrenia
     Dosage: LESS THAN OR EQUAL TO 12 MG/DAY AND 30 MG/DAY
     Route: 065
  3. BLONANSERIN [Suspect]
     Active Substance: BLONANSERIN
     Indication: Schizophrenia
     Dosage: LESS THAN OR EQUAL TO 8 MG/DAY AND 24 MG/DAY
     Route: 065

REACTIONS (3)
  - Diabetes mellitus [Unknown]
  - Dysphemia [Unknown]
  - Suicidal ideation [Unknown]
